FAERS Safety Report 12930670 (Version 1)
Quarter: 2016Q4

REPORT INFORMATION
  Report Type: Spontaneous
  Country: US (occurrence: US)
  Receive Date: 20161110
  Receipt Date: 20161110
  Transmission Date: 20170207
  Serious: No
  Sender: FDA-Public Use
  Company Number: US-VANDA PHARMACEUTICALS, INC-2016TASUS001338

PATIENT
  Sex: Male
  Weight: 84.81 kg

DRUGS (2)
  1. HETLIOZ [Suspect]
     Active Substance: TASIMELTEON
     Indication: NON-24-HOUR SLEEP-WAKE DISORDER
  2. HETLIOZ [Suspect]
     Active Substance: TASIMELTEON
     Indication: CIRCADIAN RHYTHM SLEEP DISORDER
     Dosage: 20 MG, TAKE 1 HOUR PRIOR TO HS AT SAME TIME EVERY NIGHT WITHOUT FOOD
     Route: 048
     Dates: start: 201603, end: 2016

REACTIONS (3)
  - Drug ineffective [Unknown]
  - Anxiety [Unknown]
  - Incorrect drug administration duration [Unknown]
